FAERS Safety Report 9046163 (Version 1)
Quarter: 2013Q1

REPORT INFORMATION
  Report Type: Spontaneous
  Country: DE (occurrence: DE)
  Receive Date: 20130201
  Receipt Date: 20130201
  Transmission Date: 20140127
  Serious: Yes (Hospitalization)
  Sender: FDA-Public Use
  Company Number: PHHY2013DE009062

PATIENT
  Age: 21 Year
  Sex: Male

DRUGS (2)
  1. DESFERAL [Suspect]
     Dosage: UNK UKN, UNK
  2. FERRIPROX [Concomitant]
     Dosage: UNK UKN, UNK

REACTIONS (2)
  - Cardiomyopathy [Unknown]
  - Blood creatinine increased [Unknown]
